FAERS Safety Report 8411597-9 (Version None)
Quarter: 2012Q2

REPORT INFORMATION
  Report Type: 
  Country: None (occurrence: None)
  Receive Date: 20120605
  Receipt Date: 20120511
  Transmission Date: 20120825
  Serious: No
  Sender: FDA-Public Use
  Company Number: US-AMGEN-USASP2012029895

PATIENT
  Age: 55 Year
  Sex: Male

DRUGS (2)
  1. ENBREL [Suspect]
     Indication: RHEUMATOID ARTHRITIS
     Dosage: 50 MG, QWK
     Dates: start: 20110501
  2. TREXALL [Concomitant]
     Dosage: 2.5 MG, 8 CAPSULES
     Dates: start: 20110501

REACTIONS (3)
  - MUSCULOSKELETAL PAIN [None]
  - BACK PAIN [None]
  - DRUG INEFFECTIVE [None]
